FAERS Safety Report 8098692-1 (Version None)
Quarter: 2012Q1

REPORT INFORMATION
  Report Type: 
  Country: None (occurrence: None)
  Receive Date: 20120129
  Receipt Date: 20110913
  Transmission Date: 20120608
  Serious: No
  Sender: FDA-Public Use
  Company Number: US-ABBOTT-11P-163-0854812-00

PATIENT
  Sex: Female
  Weight: 104.42 kg

DRUGS (10)
  1. SOMA [Concomitant]
     Indication: MUSCULOSKELETAL PAIN
  2. LISINOPRIL [Concomitant]
     Indication: HYPERTENSION
  3. LANSOPRAZOLE [Concomitant]
     Indication: GASTROOESOPHAGEAL REFLUX DISEASE
  4. NEMBUTAL [Concomitant]
     Indication: ANTIINFLAMMATORY THERAPY
  5. HYDROCHLOROTHIAZIDE [Concomitant]
     Indication: BLOOD PRESSURE
  6. ESTRADIOL [Concomitant]
     Indication: HORMONE REPLACEMENT THERAPY
  7. IMITREX [Concomitant]
     Indication: MIGRAINE
  8. PERCOCET [Concomitant]
     Indication: PAIN
  9. HUMIRA [Suspect]
     Indication: PSORIATIC ARTHROPATHY
     Dates: start: 20110516
  10. AMBIEN [Concomitant]
     Indication: INSOMNIA

REACTIONS (3)
  - PAIN IN EXTREMITY [None]
  - OEDEMA PERIPHERAL [None]
  - ARTHRALGIA [None]
